FAERS Safety Report 6803595-3 (Version None)
Quarter: 2010Q2

REPORT INFORMATION
  Report Type: 
  Country: None (occurrence: None)
  Receive Date: 20100628
  Receipt Date: 20100621
  Transmission Date: 20101027
  Serious: Yes (Other)
  Sender: FDA-Public Use
  Company Number: US-JNJFOC-20100606925

PATIENT
  Sex: Male
  Weight: 97.07 kg

DRUGS (9)
  1. DURAGESIC-100 [Suspect]
     Indication: PAIN
     Dosage: 100UG/HR+75UG/HR
     Route: 062
  2. TRICOR [Concomitant]
     Indication: HYPERSENSITIVITY
     Route: 048
  3. NEXIUM [Concomitant]
     Indication: GASTROOESOPHAGEAL REFLUX DISEASE
     Route: 048
  4. ACTOS [Concomitant]
     Indication: DIABETES MELLITUS
     Route: 048
  5. LOPRESSOR [Concomitant]
     Route: 048
  6. GLIPIZIDE [Concomitant]
     Indication: DIABETES MELLITUS
     Route: 048
  7. REGLAN [Concomitant]
     Indication: GASTRIC DISORDER
     Route: 048
  8. ALLEGRA [Concomitant]
     Indication: MULTIPLE ALLERGIES
     Route: 048
  9. PEPCID [Concomitant]
     Indication: GASTROOESOPHAGEAL REFLUX DISEASE
     Route: 048

REACTIONS (5)
  - AGITATION [None]
  - ANXIETY [None]
  - APPLICATION SITE IRRITATION [None]
  - PANIC ATTACK [None]
  - PRODUCT QUALITY ISSUE [None]
